FAERS Safety Report 8758486 (Version 3)
Quarter: 2012Q4

REPORT INFORMATION
  Report Type: 
  Country: US (occurrence: US)
  Receive Date: 20120829
  Receipt Date: 20121016
  Transmission Date: 20130627
  Serious: Yes (Other)
  Sender: FDA-Public Use
  Company Number: US-SANOFI-AVENTIS-2012SA044261

PATIENT
  Age: 56 Year
  Sex: Female

DRUGS (6)
  1. ENOXAPARIN SODIUM - WINTHROP [Suspect]
     Indication: BLOOD DISORDER NOS
     Route: 065
  2. ENOXAPARIN SODIUM - WINTHROP [Suspect]
     Indication: BLOOD DISORDER NOS
     Route: 065
  3. ENOXAPARIN SODIUM - WINTHROP [Suspect]
     Indication: BLOOD DISORDER NOS
     Route: 065
  4. JANUVIA [Concomitant]
     Indication: DIABETES
  5. CREON [Concomitant]
     Indication: PANCREATIC DISORDER
  6. CREON [Concomitant]
     Indication: MADELUNG^S DEFORMITY

REACTIONS (17)
  - Lipomatosis [Not Recovered/Not Resolved]
  - Condition aggravated [Not Recovered/Not Resolved]
  - Abdominal mass [Not Recovered/Not Resolved]
  - Intestinal obstruction [Not Recovered/Not Resolved]
  - Autoimmune disorder [Not Recovered/Not Resolved]
  - Visual impairment [Not Recovered/Not Resolved]
  - Urine albumin/creatinine ratio increased [Not Recovered/Not Resolved]
  - Gastrointestinal pain [Unknown]
  - Diarrhoea [Unknown]
  - Malaise [Unknown]
  - Abdominal pain upper [Unknown]
  - Arthropathy [Unknown]
  - Back pain [Unknown]
  - Weight decreased [Unknown]
  - Blood glucose increased [Not Recovered/Not Resolved]
  - Tooth loss [Not Recovered/Not Resolved]
  - Rash [Not Recovered/Not Resolved]
